FAERS Safety Report 25586141 (Version 1)
Quarter: 2025Q3

REPORT INFORMATION
  Report Type: Spontaneous
  Country: EU (occurrence: EU)
  Receive Date: 20250721
  Receipt Date: 20250721
  Transmission Date: 20251021
  Serious: Yes (Other)
  Sender: MYLAN
  Company Number: None

PATIENT
  Age: 24 Year
  Sex: Male

DRUGS (12)
  1. LYRICA [Suspect]
     Active Substance: PREGABALIN
     Indication: Product used for unknown indication
     Dates: start: 20250616, end: 20250616
  2. LYRICA [Suspect]
     Active Substance: PREGABALIN
     Route: 048
     Dates: start: 20250616, end: 20250616
  3. LYRICA [Suspect]
     Active Substance: PREGABALIN
     Route: 048
     Dates: start: 20250616, end: 20250616
  4. LYRICA [Suspect]
     Active Substance: PREGABALIN
     Dates: start: 20250616, end: 20250616
  5. COCAINE [Suspect]
     Active Substance: COCAINE
     Indication: Product used for unknown indication
  6. COCAINE [Suspect]
     Active Substance: COCAINE
     Route: 045
  7. COCAINE [Suspect]
     Active Substance: COCAINE
     Route: 045
  8. COCAINE [Suspect]
     Active Substance: COCAINE
  9. TRANXENE [Suspect]
     Active Substance: CLORAZEPATE DIPOTASSIUM
     Indication: Product used for unknown indication
     Dates: start: 20250616, end: 20250616
  10. TRANXENE [Suspect]
     Active Substance: CLORAZEPATE DIPOTASSIUM
     Route: 048
     Dates: start: 20250616, end: 20250616
  11. TRANXENE [Suspect]
     Active Substance: CLORAZEPATE DIPOTASSIUM
     Route: 048
     Dates: start: 20250616, end: 20250616
  12. TRANXENE [Suspect]
     Active Substance: CLORAZEPATE DIPOTASSIUM
     Dates: start: 20250616, end: 20250616

REACTIONS (8)
  - Patient elopement [Recovered/Resolved]
  - Aggression [Recovering/Resolving]
  - Dysarthria [Recovering/Resolving]
  - Agitation [Recovered/Resolved]
  - Somnolence [Recovering/Resolving]
  - Hypotension [Recovered/Resolved]
  - Toxicity to various agents [Recovered/Resolved]
  - Drug abuse [Not Recovered/Not Resolved]

NARRATIVE: CASE EVENT DATE: 20250616
